FAERS Safety Report 21202137 (Version 2)
Quarter: 2022Q3

REPORT INFORMATION
  Report Type: Spontaneous
  Country: US (occurrence: US)
  Receive Date: 20220811
  Receipt Date: 20220826
  Transmission Date: 20221027
  Serious: Yes (Other)
  Sender: FDA-Public Use
  Company Number: US-TEVA-2022-US-2062796

PATIENT
  Age: 29 Year
  Sex: Male

DRUGS (6)
  1. CLOZAPINE [Interacting]
     Active Substance: CLOZAPINE
     Indication: Schizophrenia
     Dosage: 350 MILLIGRAM DAILY; 350 MG/D AT BEDTIME
     Route: 065
  2. CLOZAPINE [Interacting]
     Active Substance: CLOZAPINE
     Dosage: 300 MILLIGRAM DAILY; DURING TREATMENT WITH ERYTHROMYCIN THERAPY
     Route: 065
  3. CLOZAPINE [Interacting]
     Active Substance: CLOZAPINE
     Dosage: 250 MILLIGRAM DAILY; AFTER DISCONTINUATION OF ERYTHROMYCIN THERAPY
     Route: 065
  4. ERYTHROMYCIN [Interacting]
     Active Substance: ERYTHROMYCIN
     Indication: Impaired gastric emptying
     Dosage: 300 MILLIGRAM DAILY; 3 TIMES A DAY, RECEIVED TOTAL 3 COURSES
     Route: 065
  5. HALOPERIDOL [Concomitant]
     Active Substance: HALOPERIDOL
     Indication: Schizophrenia
     Dosage: 2 MILLIGRAM DAILY;
     Route: 065
  6. CALCIUM CARBONATE [Concomitant]
     Active Substance: CALCIUM CARBONATE
     Indication: Gastrooesophageal reflux disease
     Route: 065

REACTIONS (3)
  - Impaired gastric emptying [Recovering/Resolving]
  - Drug interaction [Unknown]
  - Antipsychotic drug level increased [Unknown]
